FAERS Safety Report 5509748-9 (Version None)
Quarter: 2007Q4

REPORT INFORMATION
  Report Type: 
  Country: None (occurrence: None)
  Receive Date: 20071106
  Receipt Date: 20071022
  Transmission Date: 20080405
  Serious: Yes (Hospitalization)
  Sender: FDA-Public Use
  Company Number: 163149ISR

PATIENT
  Age: 83 Year
  Sex: Female

DRUGS (8)
  1. METFORMIN HCL [Suspect]
     Indication: DIABETES MELLITUS
     Dosage: 1500 MG
     Route: 048
     Dates: start: 20070301, end: 20070615
  2. GLIMEPIRIDE [Suspect]
     Dosage: 6 MG
     Route: 048
     Dates: start: 20070301, end: 20070615
  3. FUROSEMIDE SODIUM [Concomitant]
  4. ENALAPRIL MALEATE [Concomitant]
  5. SPIRONOLACTONE [Concomitant]
  6. ACTOACETYLSALICYLATE [Concomitant]
  7. PROPAFENONE HYDROCHLORIDE [Concomitant]
  8. DIGOXIN [Concomitant]

REACTIONS (2)
  - ALANINE AMINOTRANSFERASE INCREASED [None]
  - ASPARTATE AMINOTRANSFERASE INCREASED [None]
